FAERS Safety Report 13953842 (Version 1)
Quarter: 2017Q3

REPORT INFORMATION
  Report Type: Spontaneous
  Country: US (occurrence: US)
  Receive Date: 20170911
  Receipt Date: 20170911
  Transmission Date: 20171128
  Serious: No
  Sender: FDA-Public Use
  Company Number: US-TEVA-714293USA

PATIENT
  Sex: Female

DRUGS (2)
  1. VENLAFAXINE HCL [Suspect]
     Active Substance: VENLAFAXINE HYDROCHLORIDE
     Indication: DEPRESSION
     Dosage: BEGINNING WITH 1/2 TABLET AT UNKNOWN FREQUENCY
     Route: 065
  2. VENLAFAXINE HCL [Suspect]
     Active Substance: VENLAFAXINE HYDROCHLORIDE
     Dosage: ER

REACTIONS (5)
  - Tongue discolouration [Unknown]
  - Drug hypersensitivity [Unknown]
  - Tongue disorder [Unknown]
  - Swollen tongue [Unknown]
  - Vasodilatation [Unknown]
